FAERS Safety Report 19120196 (Version 1)
Quarter: 2021Q2

REPORT INFORMATION
  Report Type: Spontaneous
  Country: US (occurrence: US)
  Receive Date: 20210412
  Receipt Date: 20210412
  Transmission Date: 20210717
  Serious: Yes (Other)
  Sender: FDA-Public Use
  Company Number: US-BION-009641

PATIENT

DRUGS (1)
  1. BION PHARMA^S PROGESTERONE 200 MG CAPSULE [Suspect]
     Active Substance: PROGESTERONE
     Indication: PRODUCT USED FOR UNKNOWN INDICATION
     Dosage: STRENGTH: 200 MG

REACTIONS (2)
  - Haemorrhage [Unknown]
  - Muscle spasms [Unknown]
